FAERS Safety Report 9276265 (Version 1)
Quarter: 2013Q1

REPORT INFORMATION
  Report Type: Spontaneous
  Country: US (occurrence: None)
  Receive Date: 20121109
  Receipt Date: 20121109
  Transmission Date: 20140127
  Serious: No
  Sender: FDA-Public Use
  Company Number: 2012S1000511

PATIENT
  Age: 45 Year
  Sex: Male

DRUGS (3)
  1. CUBICIN [Suspect]
     Indication: STAPHYLOCOCCUS TEST POSITIVE
     Route: 042
  2. CEFTRIAXONE [Concomitant]
  3. AZITHROMYCIN [Concomitant]

REACTIONS (3)
  - Pulmonary infarction [None]
  - Pneumonia [None]
  - Embolism [None]
